FAERS Safety Report 9778320 (Version 1)
Quarter: 2013Q4

REPORT INFORMATION
  Report Type: Spontaneous
  Country: US (occurrence: US)
  Receive Date: 20131223
  Receipt Date: 20131223
  Transmission Date: 20140711
  Serious: No
  Sender: FDA-Public Use
  Company Number: US-BAYER-2013-156474

PATIENT
  Sex: Female

DRUGS (1)
  1. AVELOX [Suspect]
     Indication: SINUSITIS
     Dosage: UNK

REACTIONS (3)
  - Hypoaesthesia [Recovering/Resolving]
  - Tongue eruption [Recovering/Resolving]
  - Dizziness [Recovering/Resolving]
